FAERS Safety Report 25575123 (Version 3)
Quarter: 2025Q3

REPORT INFORMATION
  Report Type: Report from Study
  Country: EU (occurrence: EU)
  Receive Date: 20250718
  Receipt Date: 20250902
  Transmission Date: 20251020
  Serious: Yes (Hospitalization, Other)
  Sender: TAKEDA
  Company Number: EU-TAKEDA-2025TUS006882

PATIENT
  Age: 70 Year
  Sex: Female

DRUGS (6)
  1. TEDUGLUTIDE [Suspect]
     Active Substance: TEDUGLUTIDE
     Indication: Short-bowel syndrome
     Dosage: 0.16 MILLILITER, QD
     Dates: start: 20250111
  2. TEDUGLUTIDE [Suspect]
     Active Substance: TEDUGLUTIDE
     Dosage: 0.16 MILLILITER, QD
     Dates: start: 20250115
  3. TEDUGLUTIDE [Suspect]
     Active Substance: TEDUGLUTIDE
     Dosage: 0.16 MILLILITER, QD
  4. TEDUGLUTIDE [Suspect]
     Active Substance: TEDUGLUTIDE
     Dosage: 0.16 MILLILITER, QD
  5. TEDUGLUTIDE [Suspect]
     Active Substance: TEDUGLUTIDE
     Dosage: 0.16 MILLILITER, QD
  6. LASIX [Suspect]
     Active Substance: FUROSEMIDE
     Indication: Peripheral swelling

REACTIONS (9)
  - Dysphagia [Recovered/Resolved]
  - Scleroderma [Recovering/Resolving]
  - Feeding disorder [Recovered/Resolved]
  - Gastrointestinal pain [Unknown]
  - Intestinal prolapse [Recovering/Resolving]
  - Diarrhoea [Recovered/Resolved]
  - Pruritus [Unknown]
  - Rectal prolapse [Unknown]
  - Peripheral swelling [Not Recovered/Not Resolved]

NARRATIVE: CASE EVENT DATE: 20250114
